FAERS Safety Report 8582558-4 (Version None)
Quarter: 2012Q3

REPORT INFORMATION
  Report Type: 
  Country: None (occurrence: None)
  Receive Date: 20120809
  Receipt Date: 20120802
  Transmission Date: 20120928
  Serious: Yes (Hospitalization)
  Sender: FDA-Public Use
  Company Number: FR-ROCHE-1097181

PATIENT
  Sex: Female

DRUGS (5)
  1. ROCEPHIN [Suspect]
     Indication: URINARY TRACT INFECTION
     Route: 042
     Dates: start: 20120622, end: 20120624
  2. PANTOPRAZOLE SODIUM [Concomitant]
     Route: 048
  3. GAVISCON (FRANCE) [Concomitant]
     Route: 048
  4. ACETAMINOPHEN [Concomitant]
     Route: 048
  5. ECONAZOLE [Concomitant]

REACTIONS (1)
  - DRUG ERUPTION [None]
